FAERS Safety Report 15903889 (Version 1)
Quarter: 2019Q1

REPORT INFORMATION
  Report Type: Spontaneous
  Country: DE (occurrence: DE)
  Receive Date: 20190204
  Receipt Date: 20190204
  Transmission Date: 20190417
  Serious: Yes (Hospitalization)
  Sender: FDA-Public Use
  Company Number: DE-ACCORD-105300

PATIENT
  Age: 82 Year
  Sex: Female
  Weight: 82.5 kg

DRUGS (10)
  1. EFEROX [Concomitant]
     Active Substance: LEVOTHYROXINE SODIUM
     Dosage: 100 MICROG, 1-0-0, TABLETS
     Route: 048
  2. ALENDRONATE SODIUM/ALENDRONIC ACID [Concomitant]
     Dosage: ONCE A WEEK
  3. CANDESARTAN/HYDROCHLOROTHIAZIDE [Concomitant]
     Dosage: 16 / 12.5 MG, 1-0-0, TABLETS
     Route: 048
  4. CALCILAC [Concomitant]
     Active Substance: CALCIUM CARBONATE
     Dosage: 1-0-1, TABLETS
     Route: 048
  5. ALLOPURINOL. [Suspect]
     Active Substance: ALLOPURINOL
     Indication: PRODUCT USED FOR UNKNOWN INDICATION
     Dosage: 300 MG, 0-0-1, TABLETS
     Route: 048
  6. FUROSEMIDE. [Concomitant]
     Active Substance: FUROSEMIDE
     Dosage: 40 MG, 1-1-0, TABLETS
     Route: 048
  7. ELIQUIS [Concomitant]
     Active Substance: APIXABAN
     Dosage: 2.5 MG, 1-0-0, TABLETS
     Route: 048
  8. METOPROLOL. [Concomitant]
     Active Substance: METOPROLOL
     Dosage: 95 MG, 1-0-1, TABLETS
     Route: 048
  9. KALINOR [Concomitant]
     Dosage: 0-1-0, EFFERVESCENT TABLETS
     Route: 048
  10. PANTOZOL [Concomitant]
     Active Substance: PANTOPRAZOLE SODIUM
     Dosage: 40 MG, 1-0-0, TABLETS
     Route: 048

REACTIONS (7)
  - Fatigue [Unknown]
  - Dyspnoea [Unknown]
  - Cough [Unknown]
  - Chest discomfort [Unknown]
  - Pyrexia [Unknown]
  - General physical health deterioration [Unknown]
  - Influenza like illness [Unknown]
